FAERS Safety Report 4416751-9 (Version None)
Quarter: 2004Q3

REPORT INFORMATION
  Report Type: 
  Country: None (occurrence: None)
  Receive Date: 20040802
  Receipt Date: 20040716
  Transmission Date: 20050211
  Serious: Yes (Life-Threatening, Hospitalization, Other)
  Sender: FDA-Public Use
  Company Number: 2004-00410FE

PATIENT
  Age: 22 Year
  Sex: Male

DRUGS (6)
  1. PENTASA [Suspect]
     Indication: CROHN'S DISEASE
     Dosage: 3 G ORALLY
     Route: 048
     Dates: end: 20040527
  2. MERCAPTOPURINE [Suspect]
     Indication: CROHN'S DISEASE
     Dosage: 300 MG ORALLY
     Route: 048
     Dates: end: 20040527
  3. PREDNISOLONE SODIUM PHOSPHATE [Concomitant]
  4. CALCIUM CARBONATE [Concomitant]
  5. LANSOPRAZOLE [Concomitant]
  6. NICOTINE [Concomitant]

REACTIONS (19)
  - ALANINE AMINOTRANSFERASE INCREASED [None]
  - BIOPSY BONE MARROW ABNORMAL [None]
  - BLOOD BILIRUBIN INCREASED [None]
  - BLOOD CREATININE INCREASED [None]
  - BLOOD UREA DECREASED [None]
  - BODY TEMPERATURE INCREASED [None]
  - C-REACTIVE PROTEIN INCREASED [None]
  - DECREASED APPETITE [None]
  - DYSPNOEA EXACERBATED [None]
  - FATIGUE [None]
  - MALAISE [None]
  - NAUSEA [None]
  - PANCYTOPENIA [None]
  - PHARYNGOLARYNGEAL PAIN [None]
  - PRODUCTIVE COUGH [None]
  - SEPSIS [None]
  - SKIN ULCER [None]
  - TONGUE ULCERATION [None]
  - VOMITING [None]
